FAERS Safety Report 7435435-6 (Version None)
Quarter: 2011Q2

REPORT INFORMATION
  Report Type: 
  Country: None (occurrence: None)
  Receive Date: 20110425
  Receipt Date: 20110420
  Transmission Date: 20111010
  Serious: Yes (Hospitalization)
  Sender: FDA-Public Use
  Company Number: FR-MERCK-1104FRA00114

PATIENT
  Age: 29 Year
  Sex: Male

DRUGS (11)
  1. CANCIDAS [Suspect]
     Route: 065
     Dates: start: 20101020, end: 20101024
  2. AMPHOTERICIN B [Concomitant]
     Route: 065
  3. FOSFOMYCIN [Suspect]
     Route: 065
     Dates: start: 20101020, end: 20101025
  4. VANCOMYCIN [Concomitant]
     Route: 065
     Dates: start: 20101020, end: 20101103
  5. GANCICLOVIR [Concomitant]
     Route: 065
     Dates: start: 20101021
  6. CIPROFLOXACIN HYDROCHLORIDE [Suspect]
     Route: 065
     Dates: start: 20101020, end: 20101026
  7. CYCLOSPORINE [Concomitant]
     Route: 065
     Dates: start: 20101021, end: 20101023
  8. PIPERACILLIN SODIUM AND TAZOBACTAM SODIUM [Suspect]
     Route: 065
     Dates: start: 20101020, end: 20101026
  9. METHYLPREDNISOLONE SODIUM SUCCINATE [Concomitant]
     Route: 065
     Dates: start: 20101020
  10. MYCOPHENOLATE MOFETIL [Concomitant]
     Route: 065
  11. ESOMEPRAZOLE MAGNESIUM [Concomitant]
     Route: 065

REACTIONS (1)
  - HEPATITIS CHOLESTATIC [None]
